FAERS Safety Report 4508931-9 (Version None)
Quarter: 2004Q4

REPORT INFORMATION
  Report Type: 
  Country: None (occurrence: None)
  Receive Date: 20041123
  Receipt Date: 20041022
  Transmission Date: 20050328
  Serious: Yes (Life-Threatening)
  Sender: FDA-Public Use
  Company Number: JP-GLAXOSMITHKLINE-B0349433A

PATIENT
  Age: 59 Year
  Sex: Female

DRUGS (2)
  1. MODACIN [Suspect]
     Indication: BRONCHITIS
     Route: 042
     Dates: start: 20020601
  2. CEFOZOPRAN HYDROCHLORIDE [Concomitant]
     Indication: BRONCHITIS
     Route: 042
     Dates: start: 20020601

REACTIONS (4)
  - BACTERIAL PERICARDITIS [None]
  - CARDIAC TAMPONADE [None]
  - DYSPNOEA [None]
  - HYPOTENSION [None]
